FAERS Safety Report 4570207-1 (Version None)
Quarter: 2005Q1

REPORT INFORMATION
  Report Type: 
  Country: None (occurrence: None)
  Receive Date: 20050126
  Receipt Date: 20050126
  Transmission Date: 20050727
  Serious: No
  Sender: FDA-Public Use
  Company Number: None

PATIENT
  Age: 69 Year
  Sex: Male
  Weight: 107.0489 kg

DRUGS (1)
  1. WARFARIN SODIUM [Suspect]
     Indication: HEART VALVE REPLACEMENT
     Dosage: 7.5 M,F 5 ALL OTHER DAYS
     Dates: start: 20041102, end: 20041124

REACTIONS (1)
  - LOWER GASTROINTESTINAL HAEMORRHAGE [None]
